FAERS Safety Report 4652473-7 (Version None)
Quarter: 2005Q2

REPORT INFORMATION
  Report Type: 
  Country: None (occurrence: None)
  Receive Date: 20050502
  Receipt Date: 20050421
  Transmission Date: 20051028
  Serious: Yes (Hospitalization, Disabling, Other)
  Sender: FDA-Public Use
  Company Number: 2004-12-0141

PATIENT
  Age: 56 Year
  Sex: Male

DRUGS (10)
  1. GENTALLINE (GENTAMICIN SULFATE) INJECTABLE SOLUTION [Suspect]
     Indication: PROSTATE INFECTION
     Dosage: 160 MG QD INTRAMUSCULAR
     Route: 030
     Dates: start: 20030701, end: 20030708
  2. AUGMENTIN [Concomitant]
  3. PLAVIX [Concomitant]
  4. KARDEGIC SACHETS (ACETYLSALICYLATE LYSINE) [Concomitant]
  5. VASTEN (PRAVASTATIN) [Concomitant]
  6. NEURONTIN [Concomitant]
  7. OMEPRAZOLE [Concomitant]
  8. CELEBRA (CELEBREX) [Concomitant]
  9. RIVOTRIL ORAL SOLUTION [Concomitant]
  10. TRINITRINE [Concomitant]

REACTIONS (12)
  - AREFLEXIA [None]
  - BALANCE DISORDER [None]
  - CEREBELLAR SYNDROME [None]
  - CERUMEN IMPACTION [None]
  - DIZZINESS [None]
  - EXTENSOR PLANTAR RESPONSE [None]
  - FEELING COLD [None]
  - LOSS OF CONSCIOUSNESS [None]
  - NAUSEA [None]
  - NECK PAIN [None]
  - SYNCOPE [None]
  - VERTIGO [None]
